FAERS Safety Report 23859820 (Version 1)
Quarter: 2024Q2

REPORT INFORMATION
  Report Type: Spontaneous
  Country: US (occurrence: US)
  Receive Date: 20240515
  Receipt Date: 20240515
  Transmission Date: 20240716
  Serious: No
  Sender: FDA-Public Use
  Company Number: US-MYLANLABS-2024M1039861

PATIENT

DRUGS (2)
  1. METHYLPHENIDATE [Suspect]
     Active Substance: METHYLPHENIDATE
     Indication: Attention deficit hyperactivity disorder
     Dosage: 3.3 MILLIGRAM, QH
     Route: 062
  2. METHYLPHENIDATE [Suspect]
     Active Substance: METHYLPHENIDATE
     Indication: Autism spectrum disorder

REACTIONS (8)
  - Insurance issue [Unknown]
  - Disturbance in attention [Unknown]
  - Screaming [Unknown]
  - Dysphonia [Unknown]
  - Restlessness [Unknown]
  - Behaviour disorder [Unknown]
  - Drug ineffective [Unknown]
  - Product substitution issue [Unknown]
